FAERS Safety Report 20947208 (Version 1)
Quarter: 2022Q2

REPORT INFORMATION
  Report Type: Spontaneous
  Country: CN (occurrence: CN)
  Receive Date: 20220610
  Receipt Date: 20220610
  Transmission Date: 20220721
  Serious: Yes (Hospitalization, Other)
  Sender: FDA-Public Use
  Company Number: CN-GLAXOSMITHKLINE-CNCH2022APC019934

PATIENT

DRUGS (3)
  1. IBUPROFEN [Suspect]
     Active Substance: IBUPROFEN
     Indication: Pyrexia
     Dosage: UNK
     Route: 065
     Dates: start: 20200505
  2. OSELTAMIVIR PHOSPHATE [Suspect]
     Active Substance: OSELTAMIVIR PHOSPHATE
     Indication: Pyrexia
     Dosage: UNK
     Route: 065
     Dates: start: 20200508
  3. AMOXICILLIN [Suspect]
     Active Substance: AMOXICILLIN
     Indication: Pyrexia
     Dosage: UNK
     Route: 065
     Dates: start: 20200508

REACTIONS (5)
  - Toxic epidermal necrolysis [Recovered/Resolved]
  - Rash erythematous [Recovered/Resolved]
  - Face oedema [Recovered/Resolved]
  - Blister [Recovered/Resolved]
  - Skin exfoliation [Recovered/Resolved]

NARRATIVE: CASE EVENT DATE: 20200508
